FAERS Safety Report 19001583 (Version 1)
Quarter: 2021Q1

REPORT INFORMATION
  Report Type: Spontaneous
  Country: US (occurrence: US)
  Receive Date: 20210312
  Receipt Date: 20210312
  Transmission Date: 20210420
  Serious: No
  Sender: FDA-Public Use
  Company Number: US-FARMAPROD-202010-1425

PATIENT
  Sex: Female
  Weight: 15.44 kg

DRUGS (11)
  1. HEPARIN FLUSH [Concomitant]
     Active Substance: HEPARIN SODIUM
     Dosage: 1 UNIT/ML SYRINGE
  2. SULFASALAZINE. [Concomitant]
     Active Substance: SULFASALAZINE
  3. SOOTHE [Concomitant]
     Active Substance: BISMUTH SUBSALICYLATE\GLYCERIN\PROPYLENE GLYCOL
     Dosage: 20%?80%
  4. TPN ELECTROLYTES [Concomitant]
     Active Substance: CALCIUM CHLORIDE\MAGNESIUM CHLORIDE\POTASSIUM CHLORIDE\SODIUM ACETATE ANHYDROUS\SODIUM CHLORIDE
     Dosage: 35?25?5 MEQ VIAL
  5. EPINEPHRINE. [Concomitant]
     Active Substance: EPINEPHRINE
     Dosage: SYRINGE
  6. AUTOLOGOUS SERUM EYE [Concomitant]
  7. OXERVATE [Suspect]
     Active Substance: CENEGERMIN-BKBJ
     Indication: NEUROTROPHIC KERATOPATHY
     Route: 047
     Dates: start: 20201001
  8. ERGOCALCIFEROL. [Concomitant]
     Active Substance: ERGOCALCIFEROL
  9. SOOTHE [Concomitant]
     Active Substance: BISMUTH SUBSALICYLATE\GLYCERIN\PROPYLENE GLYCOL
     Dosage: 262 MG/15 ML
  10. CALCIUM [Concomitant]
     Active Substance: CALCIUM
     Dosage: 250?500 MG
  11. PANTOPRAZOLE SODIUM. [Concomitant]
     Active Substance: PANTOPRAZOLE SODIUM
     Dosage: DELAY RELEASE TABLET

REACTIONS (1)
  - Drug ineffective [Unknown]
